FAERS Safety Report 24525819 (Version 1)
Quarter: 2024Q4

REPORT INFORMATION
  Report Type: Spontaneous
  Country: DE (occurrence: DE)
  Receive Date: 20241020
  Receipt Date: 20241020
  Transmission Date: 20250115
  Serious: Yes (Other)
  Sender: ABBVIE
  Company Number: None

PATIENT
  Age: 32 Year
  Sex: Female

DRUGS (1)
  1. ESCITALOPRAM OXALATE [Suspect]
     Active Substance: ESCITALOPRAM OXALATE
     Indication: Depression
     Dosage: 10-15 MG, DOSE REDUCED TO 7.5 MG, LAST ADMIN DATE: 2024
     Route: 048
     Dates: start: 20240106

REACTIONS (3)
  - Obsessive thoughts [Recovering/Resolving]
  - Suicidal ideation [Recovering/Resolving]
  - Hypotension [Recovered/Resolved]

NARRATIVE: CASE EVENT DATE: 20240109
